FAERS Safety Report 7218116-3 (Version None)
Quarter: 2011Q1

REPORT INFORMATION
  Report Type: 
  Country: None (occurrence: None)
  Receive Date: 20110110
  Receipt Date: 20101231
  Transmission Date: 20110831
  Serious: Yes (Death)
  Sender: FDA-Public Use
  Company Number: US-MERCK-1101USA00218

PATIENT
  Age: 70 Year
  Sex: Female

DRUGS (18)
  1. METHADONE HYDROCHLORIDE [Suspect]
     Route: 048
  2. TORSEMIDE [Suspect]
     Route: 048
  3. CALCIUM (UNSPECIFIED) [Suspect]
     Route: 048
  4. FLUOXETINE [Suspect]
     Route: 048
  5. CHLORDIAZEPOXIDE [Suspect]
     Route: 048
  6. DULOXETINE HYDROCHLORIDE [Suspect]
     Route: 048
  7. CLONAZEPAM [Suspect]
     Route: 048
  8. MELOXICAM [Suspect]
     Route: 048
  9. FOLIC ACID [Suspect]
     Route: 048
  10. MEVACOR [Suspect]
     Route: 048
  11. HYDROMORPHONE [Suspect]
     Route: 048
  12. PREGABALIN [Suspect]
     Route: 048
  13. VITAMINS (UNSPECIFIED) [Suspect]
     Route: 048
  14. ZESTRIL [Suspect]
     Route: 048
  15. CYCLOBENZAPRINE HYDROCHLORIDE [Suspect]
     Route: 048
  16. ACETAMINOPHEN [Suspect]
     Route: 048
  17. ACETAMINOPHEN AND OXYCODONE HYDROCHLORIDE [Suspect]
     Route: 048
  18. DESIPRAMINE HYDROCHLORIDE [Suspect]
     Route: 048

REACTIONS (2)
  - TOXICITY TO VARIOUS AGENTS [None]
  - COMPLETED SUICIDE [None]
